FAERS Safety Report 7720671-1 (Version None)
Quarter: 2011Q3

REPORT INFORMATION
  Report Type: 
  Country: None (occurrence: None)
  Receive Date: 20110831
  Receipt Date: 20110823
  Transmission Date: 20111222
  Serious: Yes (Other)
  Sender: FDA-Public Use
  Company Number: PHEH2010US03504

PATIENT
  Sex: Female

DRUGS (10)
  1. HERCEPTIN [Concomitant]
  2. COUMADIN [Concomitant]
  3. LOVENOX [Concomitant]
  4. WARFARIN SODIUM [Concomitant]
  5. ESTRADIOL [Concomitant]
  6. LETROZOLE [Concomitant]
  7. OMEPRAZOLE [Concomitant]
  8. VICODIN [Concomitant]
  9. AMOXICILLIN [Concomitant]
  10. ZOMETA [Suspect]
     Indication: BREAST CANCER METASTATIC
     Dates: start: 20070101

REACTIONS (27)
  - PAIN [None]
  - EXPOSED BONE IN JAW [None]
  - DYSPNOEA EXERTIONAL [None]
  - THYROID DISORDER [None]
  - ARTHRITIS [None]
  - DEFORMITY [None]
  - SWELLING FACE [None]
  - PATHOLOGICAL FRACTURE [None]
  - OPEN WOUND [None]
  - OSTEOSCLEROSIS [None]
  - PAIN IN JAW [None]
  - DEPRESSION [None]
  - ABSCESS [None]
  - JAW FRACTURE [None]
  - RIB FRACTURE [None]
  - EMOTIONAL DISTRESS [None]
  - ERYTHEMA [None]
  - MUSCLE SPASMS [None]
  - NASAL CONGESTION [None]
  - PRIMARY SEQUESTRUM [None]
  - BACTERIAL DISEASE CARRIER [None]
  - INJURY [None]
  - FACIAL PAIN [None]
  - TOOTH LOSS [None]
  - PARAESTHESIA ORAL [None]
  - ANXIETY [None]
  - OSTEONECROSIS OF JAW [None]
